FAERS Safety Report 10954479 (Version 1)
Quarter: 2015Q1

REPORT INFORMATION
  Report Type: Spontaneous
  Country: PL (occurrence: PL)
  Receive Date: 20150325
  Receipt Date: 20150325
  Transmission Date: 20150721
  Serious: Yes (Hospitalization, Other)
  Sender: FDA-Public Use
  Company Number: PL-GLAXOSMITHKLINE-PL2015036505

PATIENT
  Age: 74 Year
  Sex: Female

DRUGS (1)
  1. VOTRIENT [Suspect]
     Active Substance: PAZOPANIB HYDROCHLORIDE
     Indication: METASTASES TO LUNG
     Dates: start: 201410

REACTIONS (11)
  - Nausea [Unknown]
  - Cardiac disorder [Unknown]
  - Syncope [Unknown]
  - Somnolence [Unknown]
  - Hypertension [Unknown]
  - Loss of consciousness [Unknown]
  - Abdominal pain upper [Unknown]
  - Asthenia [Unknown]
  - Headache [Unknown]
  - Speech disorder [Unknown]
  - Alopecia [Unknown]

NARRATIVE: CASE EVENT DATE: 201410
